FAERS Safety Report 23427795 (Version 1)
Quarter: 2024Q1

REPORT INFORMATION
  Report Type: Spontaneous
  Country: GB (occurrence: GB)
  Receive Date: 20240122
  Receipt Date: 20240122
  Transmission Date: 20240410
  Serious: Yes (Other)
  Sender: FDA-Public Use
  Company Number: None

PATIENT
  Age: 57 Year
  Sex: Female

DRUGS (4)
  1. ZOLEDRONIC ACID [Suspect]
     Active Substance: ZOLEDRONIC ACID
     Indication: Infusion
     Route: 042
     Dates: start: 20231207, end: 20231207
  2. CAPECITABINE [Suspect]
     Active Substance: CAPECITABINE
     Dosage: 4X500MG + 2X 150MG
     Route: 048
     Dates: start: 20231208
  3. CALCIUM CARBONATE\CHOLECALCIFEROL [Concomitant]
     Active Substance: CALCIUM CARBONATE\CHOLECALCIFEROL
  4. UNSPECIFIED INGREDIENT [Concomitant]
     Active Substance: UNSPECIFIED INGREDIENT

REACTIONS (5)
  - Hyperpyrexia [Recovered/Resolved]
  - Loss of consciousness [Recovered/Resolved]
  - Feeling cold [Unknown]
  - Hypotension [Unknown]
  - Chills [Recovered/Resolved]

NARRATIVE: CASE EVENT DATE: 20231208
